FAERS Safety Report 10023475 (Version 1)
Quarter: 2013Q4

REPORT INFORMATION
  Report Type: Spontaneous
  Country: GB (occurrence: None)
  Receive Date: 20131227
  Receipt Date: 20131227
  Transmission Date: 20140711
  Serious: Yes (Other)
  Sender: FDA-Public Use
  Company Number: 225082/LEO

PATIENT
  Age: 68 Year
  Sex: Female
  Weight: 67.6 kg

DRUGS (1)
  1. DAIVOBET (DAIVOBET) [Suspect]
     Indication: PSORIASIS
     Dosage: 1 DF (1 DF, 1 IN 1 D)?
     Dates: start: 20131108, end: 20131111

REACTIONS (7)
  - Local swelling [None]
  - Local swelling [None]
  - Local swelling [None]
  - Blister [None]
  - Skin exfoliation [None]
  - Erythema [None]
  - Discomfort [None]
